FAERS Safety Report 7134277-9 (Version None)
Quarter: 2010Q4

REPORT INFORMATION
  Report Type: 
  Country: None (occurrence: None)
  Receive Date: 20101203
  Receipt Date: 20101129
  Transmission Date: 20110411
  Serious: Yes (Death, Hospitalization, Other)
  Sender: FDA-Public Use
  Company Number: JP-ASTRAZENECA-2010SE55130

PATIENT
  Age: 88 Year
  Sex: Male
  Weight: 55 kg

DRUGS (4)
  1. CASODEX [Suspect]
     Indication: PROSTATE CANCER
     Route: 048
     Dates: end: 20100819
  2. VASOLAN [Concomitant]
     Route: 048
     Dates: start: 20100815, end: 20100819
  3. GRANDAXIN [Concomitant]
     Indication: DELIRIUM
     Route: 048
     Dates: start: 20100815, end: 20100819
  4. HANP [Concomitant]
     Route: 042
     Dates: start: 20100815, end: 20100817

REACTIONS (4)
  - ACUTE CORONARY SYNDROME [None]
  - ATRIAL FIBRILLATION [None]
  - CARDIAC FAILURE [None]
  - HEPATIC FUNCTION ABNORMAL [None]
